FAERS Safety Report 8070588-0 (Version None)
Quarter: 2012Q1

REPORT INFORMATION
  Report Type: 
  Country: None (occurrence: None)
  Receive Date: 20120125
  Receipt Date: 20120111
  Transmission Date: 20120608
  Serious: Yes (Hospitalization)
  Sender: FDA-Public Use
  Company Number: PHHY2012FR002942

PATIENT
  Sex: Female

DRUGS (3)
  1. TASIGNA [Suspect]
     Indication: CHRONIC MYELOID LEUKAEMIA
     Dosage: 1 DF, BID
     Route: 048
     Dates: start: 20111109
  2. CORTICOSTEROID NOS [Suspect]
     Dosage: UNK UKN, UNK
  3. TASIGNA [Suspect]
     Dosage: 200 MG, BID
     Route: 048
     Dates: start: 20111213

REACTIONS (13)
  - HYPERGLYCAEMIA [None]
  - LIPASE INCREASED [None]
  - TOXICITY TO VARIOUS AGENTS [None]
  - DIABETES MELLITUS [None]
  - RALES [None]
  - COUGH [None]
  - PYREXIA [None]
  - PAROTID GLAND ENLARGEMENT [None]
  - DYSPNOEA [None]
  - MYOSITIS [None]
  - NIGHTMARE [None]
  - INFLAMMATION [None]
  - INSOMNIA [None]
